FAERS Safety Report 7862959 (Version 3)
Quarter: 2012Q4

REPORT INFORMATION
  Report Type: 
  Country: US (occurrence: US)
  Receive Date: 20110318
  Receipt Date: 20121213
  Transmission Date: 20130627
  Serious: Yes (Other)
  Sender: FDA-Public Use
  Company Number: US-BAYER-2011-015486

PATIENT
  Age: 59 Year
  Sex: Male
  Weight: 67.44 kg

DRUGS (29)
  1. MAGNEVIST [Suspect]
     Indication: MRI
     Dosage: UNK
     Dates: start: 20090224, end: 20090224
  2. OMNISCAN [Suspect]
     Indication: MRI
     Dosage: UNK
     Dates: start: 20050111, end: 20050111
  3. OMNISCAN [Suspect]
     Indication: VENOGRAM
     Dosage: 30 ml, ONCE
     Dates: start: 20050314, end: 20050314
  4. OMNISCAN [Suspect]
     Indication: MRI ANGIOGRAPHY
     Dosage: UNK
     Dates: start: 20050324, end: 20050324
  5. OMNISCAN [Suspect]
     Indication: MRI
     Dosage: UNK
     Dates: start: 20050531, end: 20050531
  6. GADOLINIUM IN [Suspect]
     Indication: IMAGING PROCEDURE
  7. DIOVAN [Concomitant]
     Dosage: 160 mg, UNK
  8. NIFEDIPINE [Concomitant]
     Dosage: 90 mg, UNK
  9. CLONIDINE [Concomitant]
     Dosage: 0.2 mg, UNK
  10. PANCRELIPASE [Concomitant]
     Dosage: 4 UNK, UNK
  11. OMEPRAZOLE [Concomitant]
     Dosage: 20 mg, QD
  12. FOLIC ACID [Concomitant]
     Dosage: 1 mg, QD
  13. GABAPENTIN [Concomitant]
     Dosage: 100 mg, THREE AT BEDTIME AND ONE AFTER DIALYSIS
  14. CALCIUM ACETATE [Concomitant]
     Dosage: 667 mg, 4 capsules with meals
  15. NOVOLIN [INSULIN] [Concomitant]
  16. LISINOPRIL [Concomitant]
  17. AMLODIPINE [Concomitant]
     Dosage: 5 mg, UNK
  18. LOSARTAN POTASSIUM [Concomitant]
     Dosage: 100 mg, UNK
  19. DARBEPOETIN ALFA [Concomitant]
  20. ERYTHROPOIETIN [Concomitant]
  21. CARBIDOPA W/LEVODOPA [Concomitant]
  22. ATENOLOL [Concomitant]
  23. BUMETANIDE [Concomitant]
  24. HYDROCHLOROTHIAZIDE [Concomitant]
  25. FUROSEMIDE [Concomitant]
  26. FERROUS SULFATE [Concomitant]
  27. METOPROLOL [Concomitant]
  28. VENOFER [Concomitant]
  29. ZEMPLAR [Concomitant]

REACTIONS (19)
  - Nephrogenic systemic fibrosis [None]
  - Joint contracture [None]
  - Arthralgia [None]
  - Pruritus [None]
  - Skin tightness [None]
  - Joint range of motion decreased [None]
  - Skin hypertrophy [None]
  - Deformity [None]
  - Scar [None]
  - Pain [None]
  - Oedema peripheral [None]
  - Extremity contracture [None]
  - Musculoskeletal stiffness [None]
  - Pruritus [None]
  - Skin exfoliation [None]
  - Rash [None]
  - Pain in extremity [None]
  - Joint stiffness [None]
  - Skin discolouration [None]
